FAERS Safety Report 7221392-4 (Version None)
Quarter: 2010Q4

REPORT INFORMATION
  Report Type: 
  Country: None (occurrence: None)
  Receive Date: 20101229
  Receipt Date: 20101208
  Transmission Date: 20110411
  Serious: Yes (Hospitalization)
  Sender: FDA-Public Use
  Company Number: WAES 1012USA01613

PATIENT
  Age: 77 Year
  Sex: Female
  Weight: 71.6683 kg

DRUGS (9)
  1. ZOCOR [Suspect]
     Indication: DYSLIPIDAEMIA
     Dosage: 40 MG/DAILY/PO
     Route: 048
     Dates: start: 20090101, end: 20100716
  2. CAP BLINDED THERAPY UNK [Suspect]
     Indication: RENAL FAILURE CHRONIC
     Dosage: 3 CAP/DAILY/PO
     Route: 048
     Dates: start: 20090805
  3. DIOVAN [Concomitant]
  4. DRISDOL [Concomitant]
  5. PROCARDIA [Concomitant]
  6. PROCRIT [Concomitant]
  7. TYLENOL-500 [Concomitant]
  8. CALCITRIOL [Concomitant]
  9. GLIPIZIDE [Concomitant]

REACTIONS (9)
  - BLOOD CREATINE INCREASED [None]
  - BLOOD SODIUM DECREASED [None]
  - DEHYDRATION [None]
  - ELECTROCARDIOGRAM QT PROLONGED [None]
  - ELECTROCARDIOGRAM T WAVE ABNORMAL [None]
  - HYPOPHAGIA [None]
  - RENAL CYST [None]
  - RENAL FUNCTION TEST ABNORMAL [None]
  - RHABDOMYOLYSIS [None]
